FAERS Safety Report 21964818 (Version 1)
Quarter: 2023Q1

REPORT INFORMATION
  Report Type: Report from Study
  Country: US (occurrence: US)
  Receive Date: 20230207
  Receipt Date: 20230207
  Transmission Date: 20230418
  Serious: Yes (Hospitalization, Other)
  Sender: FDA-Public Use
  Company Number: US-GILEAD-2023-0615590

PATIENT
  Sex: Female

DRUGS (1)
  1. AZTREONAM LYSINE [Suspect]
     Active Substance: AZTREONAM LYSINE
     Indication: Cystic fibrosis
     Dosage: 75 MG, TID (75 MG VIA ALTERA NEBULIZER SYSTEM ONLY THREE TIMES DAILY FOR 28 DAYS ON AND 28 DAYS OFF)
     Route: 055

REACTIONS (1)
  - Pneumonia [Unknown]
